FAERS Safety Report 8607351-5 (Version None)
Quarter: 2012Q3

REPORT INFORMATION
  Report Type: 
  Country: None (occurrence: None)
  Receive Date: 20120821
  Receipt Date: 20120815
  Transmission Date: 20120928
  Serious: No
  Sender: FDA-Public Use
  Company Number: US-PFIZER INC-2012200069

PATIENT
  Sex: Female

DRUGS (1)
  1. PREMARIN [Suspect]
     Dosage: 1 G, TWICE A WEEK

REACTIONS (2)
  - VULVOVAGINAL DRYNESS [None]
  - VULVOVAGINAL DISCOMFORT [None]
